FAERS Safety Report 19544862 (Version 2)
Quarter: 2021Q4

REPORT INFORMATION
  Report Type: Spontaneous
  Country: US (occurrence: US)
  Receive Date: 20210714
  Receipt Date: 20211004
  Transmission Date: 20220303
  Serious: Yes (Hospitalization)
  Sender: FDA-Public Use
  Company Number: US-DRREDDYS-SPO/USA/21/0137626

PATIENT
  Age: 67 Year
  Sex: Male

DRUGS (2)
  1. IBUPROFEN [Suspect]
     Active Substance: IBUPROFEN
     Indication: Arthralgia
  2. IBUPROFEN [Suspect]
     Active Substance: IBUPROFEN
     Dosage: THREE TO FOUR TIMES A DAY, INTENSIFICATION OF THERAPY

REACTIONS (3)
  - Tubulointerstitial nephritis [Recovering/Resolving]
  - Glomerulonephropathy [Recovering/Resolving]
  - Glomerulonephritis minimal lesion [Recovering/Resolving]
